FAERS Safety Report 9646441 (Version 1)
Quarter: 2013Q4

REPORT INFORMATION
  Report Type: Spontaneous
  Country: GR (occurrence: None)
  Receive Date: 20131024
  Receipt Date: 20131024
  Transmission Date: 20140711
  Serious: Yes (Other)
  Sender: FDA-Public Use
  Company Number: CO-OR-EL-2013-173

PATIENT
  Age: 40 Year
  Sex: Male

DRUGS (2)
  1. PREDNISOLONE (PREDNISOLONE) [Suspect]
     Indication: MYASTHENIA GRAVIS
     Route: 048
  2. AZATHIOPRINE [Suspect]
     Indication: MYASTHENIA GRAVIS

REACTIONS (3)
  - Macular fibrosis [None]
  - Detachment of retinal pigment epithelium [None]
  - Chorioretinopathy [None]
